FAERS Safety Report 22538340 (Version 2)
Quarter: 2023Q2

REPORT INFORMATION
  Report Type: Report from Study
  Country: US (occurrence: US)
  Receive Date: 20230609
  Receipt Date: 20230630
  Transmission Date: 20230722
  Serious: No
  Sender: FDA-Public Use
  Company Number: US-ACADIA PHARMACEUTICALS INC.-ACA-2023-PIM-001900

PATIENT
  Sex: Male

DRUGS (17)
  1. NUPLAZID [Suspect]
     Active Substance: PIMAVANSERIN TARTRATE
     Indication: Parkinson^s disease psychosis
     Dosage: 34 MILLIGRAM, QD
     Route: 048
     Dates: start: 20230504
  2. GOCOVRI [Suspect]
     Active Substance: AMANTADINE
     Dosage: 137 MILLIGRAM
  3. BACLOFEN [Concomitant]
     Active Substance: BACLOFEN
     Dosage: 10 MILLIGRAM
  4. FLOMAX [Concomitant]
     Active Substance: TAMSULOSIN HYDROCHLORIDE
     Dosage: 0.4 MG
  5. LIPITOR [Concomitant]
     Active Substance: ATORVASTATIN CALCIUM
     Dosage: 40 MILLIGRAM
  6. NUEDEXTA [Concomitant]
     Active Substance: DEXTROMETHORPHAN HYDROBROMIDE\QUINIDINE SULFATE
     Dosage: 20-10 MG
  7. ROTARIX [Concomitant]
     Active Substance: HUMAN ROTAVIRUS A TYPE G1P(8) STRAIN RIX4414 LIVE ANTIGEN
  8. VITAMIN D3 [Concomitant]
     Active Substance: CHOLECALCIFEROL
     Dosage: 1000 UNIT
  9. DICLOFENAC [Concomitant]
     Active Substance: DICLOFENAC
     Dosage: 1%
  10. TYLENOL [Concomitant]
     Active Substance: ACETAMINOPHEN
  11. AMANTADINE [Concomitant]
     Active Substance: AMANTADINE
  12. ATORVASTATIN [Concomitant]
     Active Substance: ATORVASTATIN
  13. RYTARY [Concomitant]
     Active Substance: CARBIDOPA\LEVODOPA
  14. LIDOCAINE [Concomitant]
     Active Substance: LIDOCAINE
  15. MELATONIN [Concomitant]
     Active Substance: MELATONIN
  16. MIDODRINE [Concomitant]
     Active Substance: MIDODRINE
  17. LISINOPRIL [Concomitant]
     Active Substance: LISINOPRIL

REACTIONS (9)
  - Dizziness postural [Unknown]
  - Dry mouth [Unknown]
  - Fatigue [Unknown]
  - Impulse-control disorder [Unknown]
  - Sleep disorder [Unknown]
  - Confusional state [Not Recovered/Not Resolved]
  - Hallucinations, mixed [Recovering/Resolving]
  - Oedema peripheral [Unknown]
  - Fall [Unknown]
